FAERS Safety Report 17847715 (Version 1)
Quarter: 2020Q2

REPORT INFORMATION
  Report Type: Spontaneous
  Country: US (occurrence: US)
  Receive Date: 20200601
  Receipt Date: 20200601
  Transmission Date: 20200714
  Serious: Yes (Death)
  Sender: FDA-Public Use
  Company Number: US-MALLINCKRODT-T202002471

PATIENT
  Sex: Female

DRUGS (2)
  1. H.P. ACTHAR [Suspect]
     Active Substance: CORTICOTROPIN
     Indication: SARCOIDOSIS
     Dosage: 80 UNITS, TWICE WEEKLY
     Route: 030
     Dates: start: 20200222
  2. H.P. ACTHAR [Suspect]
     Active Substance: CORTICOTROPIN
     Indication: PULMONARY HYPERTENSION

REACTIONS (2)
  - Disease progression [Fatal]
  - COVID-19 [Fatal]

NARRATIVE: CASE EVENT DATE: 2020
